FAERS Safety Report 8697362 (Version 5)
Quarter: 2012Q4

REPORT INFORMATION
  Report Type: 
  Country: SE (occurrence: SE)
  Receive Date: 20120801
  Receipt Date: 20120827
  Transmission Date: 20130627
  Serious: Yes (Death, Hospitalization)
  Sender: FDA-Public Use
  Company Number: PHHO2012SE011018

PATIENT
  Age: 71 Year
  Sex: Male
  Weight: 102.7 kg

DRUGS (7)
  1. ACZ885 [Suspect]
     Indication: CARDIOVASCULAR EVENT PROPHYLAXIS
     Dosage: 300 mg, UNK
     Route: 058
     Dates: start: 20120502, end: 20120502
  2. ACZ885 [Suspect]
     Dosage: 300 mg, UNK
     Route: 058
     Dates: start: 20120515
  3. ASPIRIN [Concomitant]
     Indication: MYOCARDIAL INFARCTION
     Dosage: 160 mg, QD
     Dates: start: 1991
  4. FUROSEMIDE [Concomitant]
     Indication: CARDIAC FAILURE
     Dosage: 40 mg, BID
     Dates: start: 2006
  5. BISOPROLOL [Concomitant]
     Indication: MYOCARDIAL INFARCTION
     Dosage: 5 mg, QD
     Dates: start: 2006
  6. CARVEDILOL [Concomitant]
     Indication: CARDIAC FAILURE
     Dosage: 8 mg, QD
     Dates: start: 2004
  7. ROSUVASTATIN [Concomitant]
     Indication: HYPERLIPIDAEMIA
     Dosage: 20 mg, QD
     Dates: start: 2006

REACTIONS (3)
  - Sepsis [Fatal]
  - Cardiac arrest [Fatal]
  - Staphylococcus test positive [None]
